FAERS Safety Report 10694444 (Version 2)
Quarter: 2015Q1

REPORT INFORMATION
  Report Type: Spontaneous
  Country: IT (occurrence: IT)
  Receive Date: 20150107
  Receipt Date: 20150129
  Transmission Date: 20150721
  Serious: Yes (Other)
  Sender: FDA-Public Use
  Company Number: IT-ACCORD-027927

PATIENT
  Age: 52 Year

DRUGS (2)
  1. ACCORD GEMCITABINE [Suspect]
     Active Substance: GEMCITABINE HYDROCHLORIDE
     Indication: UTERINE LEIOMYOSARCOMA
     Route: 042
     Dates: start: 20141014, end: 20141203
  2. DOCETAXEL TEVA [Suspect]
     Active Substance: DOCETAXEL
     Indication: UTERINE LEIOMYOSARCOMA
     Route: 042
     Dates: start: 20141014, end: 20141203

REACTIONS (3)
  - Off label use [Unknown]
  - Back pain [Recovered/Resolved]
  - Urticaria [Recovered/Resolved]

NARRATIVE: CASE EVENT DATE: 20141203
